FAERS Safety Report 4689458-0 (Version None)
Quarter: 2005Q2

REPORT INFORMATION
  Report Type: 
  Country: None (occurrence: None)
  Receive Date: 20050311
  Receipt Date: 20050311
  Transmission Date: 20051028
  Serious: Yes (Life-Threatening, Congenital Anomaly)
  Sender: FDA-Public Use
  Company Number: None

PATIENT
  Sex: Female

DRUGS (3)
  1. ATIVAN 2 MG Q HS [Suspect]
     Indication: CONVULSION
  2. ATIVAN 2 MG Q HS [Suspect]
     Indication: ENCEPHALOPATHY
  3. ATIVAN 2 MG Q HS [Suspect]
     Indication: INSOMNIA

REACTIONS (1)
  - NO ADVERSE EFFECT [None]
